FAERS Safety Report 5319367-5 (Version None)
Quarter: 2007Q2

REPORT INFORMATION
  Report Type: 
  Country: None (occurrence: None)
  Receive Date: 20070508
  Receipt Date: 20070501
  Transmission Date: 20071010
  Serious: Yes (Hospitalization)
  Sender: FDA-Public Use
  Company Number: US-ELI_LILLY_AND_COMPANY-US200703001702

PATIENT
  Age: 59 Year
  Sex: Female

DRUGS (3)
  1. BYETTA [Suspect]
     Indication: DIABETES MELLITUS NON-INSULIN-DEPENDENT
     Dosage: 5 U, 2/D
     Route: 058
     Dates: start: 20060101, end: 20060101
  2. BYETTA [Suspect]
     Dosage: 10 U, 2/D
     Route: 058
     Dates: start: 20060101
  3. GLUCOVANCE [Concomitant]
     Dosage: UNK, UNKNOWN

REACTIONS (2)
  - BLOOD GLUCOSE INCREASED [None]
  - ROTATOR CUFF SYNDROME [None]
